FAERS Safety Report 5098127-7 (Version None)
Quarter: 2006Q3

REPORT INFORMATION
  Report Type: 
  Country: None (occurrence: None)
  Receive Date: 20060906
  Receipt Date: 20060420
  Transmission Date: 20061208
  Serious: No
  Sender: FDA-Public Use
  Company Number: US-GLAXOSMITHKLINE-A0602661A

PATIENT
  Age: 55 Year
  Sex: Female

DRUGS (10)
  1. REQUIP [Suspect]
     Indication: NEUROPATHY PERIPHERAL
     Dosage: .5MG AT NIGHT
     Route: 048
     Dates: start: 20060417, end: 20060419
  2. LEXAPRO [Concomitant]
  3. TRAZODONE HCL [Concomitant]
  4. NEXIUM [Concomitant]
  5. PREMPRO [Concomitant]
  6. GLUCOPHAGE [Concomitant]
  7. MICRONASE [Concomitant]
  8. TRICOR [Concomitant]
  9. PRINIVIL [Concomitant]
  10. ASPIRIN [Concomitant]

REACTIONS (4)
  - ADVERSE EVENT [None]
  - PAIN [None]
  - SKIN INFECTION [None]
  - TREMOR [None]
